FAERS Safety Report 6838250-7 (Version None)
Quarter: 2010Q3

REPORT INFORMATION
  Report Type: 
  Country: None (occurrence: None)
  Receive Date: 20100713
  Receipt Date: 20070604
  Transmission Date: 20110219
  Serious: No
  Sender: FDA-Public Use
  Company Number: US-PFIZER INC-2007047346

PATIENT
  Age: 28 Year
  Sex: Female
  Weight: 77.1 kg

DRUGS (3)
  1. CHANTIX [Suspect]
     Indication: SMOKING CESSATION THERAPY
     Dates: start: 20070526
  2. BENADRYL [Suspect]
     Indication: SLEEP DISORDER
  3. PROVENTIL GENTLEHALER [Concomitant]
     Route: 055

REACTIONS (3)
  - NAUSEA [None]
  - PALPITATIONS [None]
  - SLEEP DISORDER [None]
